FAERS Safety Report 5957577-4 (Version None)
Quarter: 2008Q4

REPORT INFORMATION
  Report Type: 
  Country: None (occurrence: None)
  Receive Date: 20081117
  Receipt Date: 20081117
  Transmission Date: 20090506
  Serious: No
  Sender: FDA-Public Use
  Company Number: None

PATIENT
  Age: 63 Year
  Sex: Male
  Weight: 104.3273 kg

DRUGS (3)
  1. BACTRIM DS [Suspect]
     Indication: INFECTION
     Dosage: ONE TABLET TWICE DAY MOUTH
     Route: 048
     Dates: start: 20081020
  2. BACTRIM DS [Suspect]
     Indication: INFECTION
     Dosage: ONE TABLET TWICE DAY MOUTH
     Route: 048
     Dates: start: 20081021
  3. BACTRIM DS [Suspect]
     Indication: INFECTION
     Dosage: ONE TABLET TWICE DAY MOUTH
     Route: 048
     Dates: start: 20081022

REACTIONS (2)
  - PRURITUS [None]
  - RASH [None]
